FAERS Safety Report 21178205 (Version 2)
Quarter: 2022Q3

REPORT INFORMATION
  Report Type: Spontaneous
  Country: RU (occurrence: RU)
  Receive Date: 20220805
  Receipt Date: 20220816
  Transmission Date: 20221027
  Serious: Yes (Hospitalization, Other)
  Sender: FDA-Public Use
  Company Number: RU-BAYER-2022P009556

PATIENT
  Age: 66 Year
  Sex: Female

DRUGS (3)
  1. ULTRAVIST [Suspect]
     Active Substance: IOPROMIDE
     Indication: Computerised tomogram thorax
     Dosage: UNK, ONCE
     Dates: start: 20220801, end: 20220801
  2. ULTRAVIST [Suspect]
     Active Substance: IOPROMIDE
     Indication: Computerised tomogram abdomen
  3. ULTRAVIST [Suspect]
     Active Substance: IOPROMIDE
     Indication: Breast cancer

REACTIONS (4)
  - Malaise [Recovered/Resolved]
  - Lethargy [Recovered/Resolved]
  - Somnolence [Recovered/Resolved]
  - Cold sweat [Recovered/Resolved]

NARRATIVE: CASE EVENT DATE: 20220801
